FAERS Safety Report 9705404 (Version 1)
Quarter: 2013Q4

REPORT INFORMATION
  Report Type: Spontaneous
  Country: GB (occurrence: GB)
  Receive Date: 20131122
  Receipt Date: 20131122
  Transmission Date: 20140711
  Serious: Yes (Other)
  Sender: FDA-Public Use
  Company Number: GB-ELI_LILLY_AND_COMPANY-GB201311004397

PATIENT
  Age: 75 Year
  Sex: Female

DRUGS (5)
  1. OLANZAPINE [Suspect]
     Indication: PRODUCT USED FOR UNKNOWN INDICATION
     Dosage: UNK UNK, UNKNOWN
     Route: 065
     Dates: end: 20131104
  2. LEVOTHYROXINE [Concomitant]
     Dosage: 50 UG, UNKNOWN
  3. TIOTROPIUM [Concomitant]
     Dosage: UNK UNK, UNKNOWN
  4. SENNA                              /00142201/ [Concomitant]
     Dosage: UNK UNK, UNKNOWN
  5. BUDESONIDE [Concomitant]
     Dosage: UNK UNK, UNKNOWN

REACTIONS (3)
  - Neutropenia [Recovering/Resolving]
  - Oropharyngeal pain [Unknown]
  - Cough [Unknown]
